FAERS Safety Report 6028540-2 (Version None)
Quarter: 2008Q4

REPORT INFORMATION
  Report Type: 
  Country: None (occurrence: None)
  Receive Date: 20081231
  Receipt Date: 20081231
  Transmission Date: 20090506
  Serious: Yes (Hospitalization)
  Sender: FDA-Public Use
  Company Number: None

PATIENT
  Age: 60 Year
  Sex: Male

DRUGS (2)
  1. EPTIFIBATIDE [Suspect]
     Indication: CORONARY ARTERIAL STENT INSERTION
     Dates: start: 20080617, end: 20080618
  2. CLOPIDOGREL [Interacting]
     Dosage: 75 MG EVERY DAY PO
     Route: 048
     Dates: start: 20080617

REACTIONS (5)
  - ASTHENIA [None]
  - GASTRIC HAEMORRHAGE [None]
  - HAEMATEMESIS [None]
  - MELAENA [None]
  - NAUSEA [None]
